FAERS Safety Report 5434899-7 (Version None)
Quarter: 2007Q3

REPORT INFORMATION
  Report Type: 
  Country: None (occurrence: None)
  Receive Date: 20070828
  Receipt Date: 20070828
  Transmission Date: 20080115
  Serious: Yes (Life-Threatening)
  Sender: FDA-Public Use
  Company Number: None

PATIENT
  Age: 73 Year
  Sex: Male
  Weight: 104.3273 kg

DRUGS (2)
  1. AVANDIA [Suspect]
     Indication: GLUCOSE TOLERANCE IMPAIRED
     Dosage: 4MGM QD PO 4MGM BID PO
     Route: 048
     Dates: start: 20051115, end: 20060328
  2. AVANDIA [Suspect]
     Indication: GLUCOSE TOLERANCE IMPAIRED
     Dosage: 4MGM QD PO 4MGM BID PO
     Route: 048
     Dates: start: 20070328, end: 20070503

REACTIONS (7)
  - DRUG INEFFECTIVE [None]
  - DYSPNOEA [None]
  - FATIGUE [None]
  - MUSCLE SPASMS [None]
  - MYALGIA [None]
  - OEDEMA PERIPHERAL [None]
  - PITTING OEDEMA [None]
